FAERS Safety Report 6465173-8 (Version None)
Quarter: 2009Q4

REPORT INFORMATION
  Report Type: 
  Country: None (occurrence: None)
  Receive Date: 20091201
  Receipt Date: 20091116
  Transmission Date: 20100525
  Serious: Yes (Other)
  Sender: FDA-Public Use
  Company Number: FR-GENENTECH-294936

PATIENT

DRUGS (6)
  1. RITUXIMAB [Suspect]
     Indication: B-CELL LYMPHOMA
     Dosage: ON DAY 1 OF EACH CHOP CYCLE
     Route: 065
  2. CYCLOPHOSPHAMIDE [Suspect]
     Indication: B-CELL LYMPHOMA
     Dosage: ON DAY 1
     Route: 065
  3. DOXORUBICIN HCL [Suspect]
     Indication: B-CELL LYMPHOMA
     Dosage: ON DAY 1
     Route: 065
  4. VINCRISTINE [Suspect]
     Indication: B-CELL LYMPHOMA
     Dosage: 1.4 MG/M2 (UPTO 2 MG) ON DAY 1
     Route: 065
  5. PREDNISONE TAB [Suspect]
     Indication: B-CELL LYMPHOMA
     Dosage: TAKEN FOR 5 DAYS, EVERY 3 WEEK (1 CYCLE)
     Route: 065
  6. BORTEZOMIB [Suspect]
     Indication: B-CELL LYMPHOMA
     Dosage: UNK
     Route: 065

REACTIONS (10)
  - CARDIOTOXICITY [None]
  - CARDIOVASCULAR DISORDER [None]
  - CONSTIPATION [None]
  - INFECTION [None]
  - LEUKOPENIA [None]
  - NAUSEA [None]
  - NEUROPATHY PERIPHERAL [None]
  - NEUROTOXICITY [None]
  - PYREXIA [None]
  - THROMBOCYTOPENIA [None]
